FAERS Safety Report 8404666-0 (Version None)
Quarter: 2012Q2

REPORT INFORMATION
  Report Type: 
  Country: None (occurrence: None)
  Receive Date: 20120601
  Receipt Date: 20120523
  Transmission Date: 20120825
  Serious: Yes (Other)
  Sender: FDA-Public Use
  Company Number: RU-ASTRAZENECA-2012SE33700

PATIENT
  Age: 80 Year
  Sex: Female

DRUGS (1)
  1. METOPROLOL SUCCINATE [Suspect]
     Indication: ANGINA PECTORIS
     Route: 048
     Dates: end: 20120101

REACTIONS (1)
  - ANGIOEDEMA [None]
